FAERS Safety Report 8109590-9 (Version None)
Quarter: 2012Q1

REPORT INFORMATION
  Report Type: 
  Country: None (occurrence: None)
  Receive Date: 20120202
  Receipt Date: 20120117
  Transmission Date: 20120608
  Serious: No
  Sender: FDA-Public Use
  Company Number: US-AMGEN-USASP2012003348

PATIENT
  Age: 52 Year
  Sex: Female

DRUGS (2)
  1. ENBREL [Suspect]
     Indication: PSORIASIS
     Dosage: 50 MG, 2 TIMES/WK
     Dates: start: 20030110
  2. HUMIRA [Concomitant]

REACTIONS (4)
  - BRONCHITIS [None]
  - INJECTION SITE PAIN [None]
  - NASOPHARYNGITIS [None]
  - PSORIASIS [None]
